FAERS Safety Report 8293853-0 (Version None)
Quarter: 2012Q2

REPORT INFORMATION
  Report Type: 
  Country: None (occurrence: None)
  Receive Date: 20120418
  Receipt Date: 20120413
  Transmission Date: 20120825
  Serious: No
  Sender: FDA-Public Use
  Company Number: US-PFIZER INC-2012093192

PATIENT

DRUGS (2)
  1. FLECTOR [Suspect]
     Indication: BACK PAIN
  2. FLECTOR [Suspect]
     Indication: ARTHRALGIA
     Dosage: UNK

REACTIONS (2)
  - MUSCLE STRAIN [None]
  - SUNBURN [None]
